FAERS Safety Report 9816474 (Version 1)
Quarter: 2014Q1

REPORT INFORMATION
  Report Type: Spontaneous
  Country: US (occurrence: US)
  Receive Date: 20140114
  Receipt Date: 20140114
  Transmission Date: 20141002
  Serious: Yes (Death)
  Sender: FDA-Public Use
  Company Number: US-PFIZER INC-2014007959

PATIENT
  Age: 24 Year
  Sex: Male

DRUGS (2)
  1. MORPHINE SULFATE [Suspect]
     Dosage: UNK
     Route: 048
  2. AMPHETAMINE [Suspect]
     Dosage: UNK
     Route: 048

REACTIONS (11)
  - Drug abuse [Fatal]
  - Unresponsive to stimuli [Fatal]
  - Convulsion [Fatal]
  - Hyperthermia [Fatal]
  - Hypotension [Fatal]
  - Disseminated intravascular coagulation [Fatal]
  - Renal failure acute [Fatal]
  - Ischaemic hepatitis [Fatal]
  - Brain oedema [Fatal]
  - Infarction [Fatal]
  - Pulmonary oedema [Fatal]
